FAERS Safety Report 23895221 (Version 1)
Quarter: 2024Q2

REPORT INFORMATION
  Report Type: Spontaneous
  Country: US (occurrence: US)
  Receive Date: 20240524
  Receipt Date: 20240524
  Transmission Date: 20240716
  Serious: No
  Sender: FDA-Public Use
  Company Number: US-BAYER-2024A075783

PATIENT
  Age: 93 Year
  Sex: Female

DRUGS (3)
  1. CLARITIN [Suspect]
     Active Substance: LORATADINE
     Indication: Nasal congestion
     Dosage: 1 TABLET WITH A GLASS OF WATER
     Route: 048
     Dates: end: 20240522
  2. CLARITIN [Suspect]
     Active Substance: LORATADINE
     Indication: Hypersensitivity
  3. CLARITIN [Suspect]
     Active Substance: LORATADINE
     Indication: Nasopharyngitis

REACTIONS (1)
  - Somnolence [Not Recovered/Not Resolved]
